FAERS Safety Report 5051529-7 (Version None)
Quarter: 2006Q3

REPORT INFORMATION
  Report Type: 
  Country: None (occurrence: None)
  Receive Date: 20060710
  Receipt Date: 20060628
  Transmission Date: 20061208
  Serious: Yes (Other)
  Sender: FDA-Public Use
  Company Number: 2006BI009394

PATIENT
  Age: 75 Year
  Sex: Male
  Weight: 88.905 kg

DRUGS (3)
  1. ZEVALIN [Suspect]
     Indication: MANTLE CELL LYMPHOMA
     Dosage: 1X, IV
     Route: 042
     Dates: start: 20060307, end: 20060307
  2. ZEVALIN [Suspect]
     Indication: MANTLE CELL LYMPHOMA
     Dosage: 1X;IV
     Route: 042
     Dates: start: 20060314, end: 20060314
  3. RITUXAN [Concomitant]

REACTIONS (3)
  - BLINDNESS UNILATERAL [None]
  - LYMPHOMA [None]
  - OCULAR HYPERAEMIA [None]
